FAERS Safety Report 5751045-0 (Version None)
Quarter: 2008Q2

REPORT INFORMATION
  Report Type: 
  Country: None (occurrence: None)
  Receive Date: 20080528
  Receipt Date: 20080520
  Transmission Date: 20081010
  Serious: Yes (Other)
  Sender: FDA-Public Use
  Company Number: ES-AVENTIS-200814756GDDC

PATIENT
  Age: 54 Year
  Sex: Female

DRUGS (3)
  1. ARAVA [Suspect]
     Indication: PSORIASIS
     Route: 048
     Dates: start: 20051117, end: 20070101
  2. IBUPROFEN [Suspect]
     Dosage: DOSE: UNK
     Route: 048
     Dates: start: 20071001, end: 20071001
  3. DIPROSALIC [Concomitant]
     Dosage: DOSE: UNK
     Dates: start: 20010517

REACTIONS (3)
  - DRUG INTERACTION [None]
  - HEPATITIS TOXIC [None]
  - JAUNDICE [None]
